FAERS Safety Report 23023788 (Version 2)
Quarter: 2023Q4

REPORT INFORMATION
  Report Type: Spontaneous
  Country: US (occurrence: US)
  Receive Date: 20231003
  Receipt Date: 20231013
  Transmission Date: 20240110
  Serious: No
  Sender: FDA-Public Use
  Company Number: US-BRISTOL-MYERS SQUIBB COMPANY-2023-138020

PATIENT
  Age: 72 Year
  Sex: Male
  Weight: 87.09 kg

DRUGS (1)
  1. POMALYST [Suspect]
     Active Substance: POMALIDOMIDE
     Indication: Plasma cell myeloma
     Dosage: FREQUENCY: 2WKSON,1WKOFF
     Route: 048

REACTIONS (2)
  - Off label use [Unknown]
  - Blister [Unknown]

NARRATIVE: CASE EVENT DATE: 20231008
